FAERS Safety Report 9158501 (Version 1)
Quarter: 2013Q1

REPORT INFORMATION
  Report Type: Spontaneous
  Country: US (occurrence: US)
  Receive Date: 20130312
  Receipt Date: 20130312
  Transmission Date: 20140127
  Serious: Yes (Death)
  Sender: FDA-Public Use
  Company Number: CHPA2013US004327

PATIENT
  Sex: 0

DRUGS (1)
  1. TRIAMINIC VAPOR PATCH [Suspect]
     Dosage: UNK, UNK
     Route: 048

REACTIONS (2)
  - Death [Fatal]
  - Accidental exposure to product by child [Unknown]
